FAERS Safety Report 13357604 (Version 3)
Quarter: 2017Q3

REPORT INFORMATION
  Report Type: Spontaneous
  Country: FR (occurrence: FR)
  Receive Date: 20170322
  Receipt Date: 20170704
  Transmission Date: 20171127
  Serious: Yes (Other)
  Sender: FDA-Public Use
  Company Number: FR-AMGEN-FRASP2017025387

PATIENT
  Age: 53 Year
  Sex: Female
  Weight: 40 kg

DRUGS (2)
  1. UVEDOSE [Concomitant]
     Active Substance: CHOLECALCIFEROL
     Dosage: 100000 UNIT(1/3 MONTHS), UNK
     Dates: start: 20160920
  2. PROLIA [Suspect]
     Active Substance: DENOSUMAB
     Indication: OSTEOPOROSIS
     Dosage: UNK
     Route: 058
     Dates: start: 20160920, end: 201703

REACTIONS (10)
  - Cholecystectomy [Unknown]
  - Infection [Unknown]
  - Polyp [Unknown]
  - Fatigue [Unknown]
  - Pyrexia [Not Recovered/Not Resolved]
  - Systemic lupus erythematosus [Unknown]
  - Myalgia [Recovering/Resolving]
  - Arthralgia [Recovering/Resolving]
  - Pain in extremity [Recovering/Resolving]
  - Calculus bladder [Unknown]

NARRATIVE: CASE EVENT DATE: 2016
